FAERS Safety Report 21701614 (Version 1)
Quarter: 2022Q4

REPORT INFORMATION
  Report Type: Spontaneous
  Country: DK (occurrence: DK)
  Receive Date: 20221208
  Receipt Date: 20221208
  Transmission Date: 20230113
  Serious: Yes (Other)
  Sender: FDA-Public Use
  Company Number: None

PATIENT
  Age: 37 Year
  Sex: Female
  Weight: 73 kg

DRUGS (2)
  1. MIRENA [Suspect]
     Active Substance: LEVONORGESTREL
     Indication: Contraception
     Dosage: 20?G/DAY
     Route: 015
     Dates: start: 20200914, end: 20210728
  2. ETANERCEPT [Concomitant]
     Active Substance: ETANERCEPT
     Indication: Rheumatic disorder
     Dates: start: 20180801

REACTIONS (5)
  - Migraine [Recovering/Resolving]
  - Eczema [Recovering/Resolving]
  - Weight increased [Not Recovered/Not Resolved]
  - Hirsutism [Not Recovered/Not Resolved]
  - Genital haemorrhage [Recovering/Resolving]

NARRATIVE: CASE EVENT DATE: 20201001
